FAERS Safety Report 10703596 (Version 2)
Quarter: 2015Q1

REPORT INFORMATION
  Report Type: Spontaneous
  Country: NZ (occurrence: NZ)
  Receive Date: 20150112
  Receipt Date: 20150122
  Transmission Date: 20150721
  Serious: Yes (Death, Hospitalization)
  Sender: FDA-Public Use
  Company Number: NZ-JNJFOC-20150106310

PATIENT
  Age: 17 Month
  Weight: 10.6 kg

DRUGS (1)
  1. PARACETAMOL [Suspect]
     Active Substance: ACETAMINOPHEN
     Indication: PRODUCT USED FOR UNKNOWN INDICATION
     Dosage: MG/KG/DAY
     Route: 048

REACTIONS (6)
  - Overdose [Fatal]
  - Hepatic encephalopathy [Fatal]
  - Medication error [Unknown]
  - Acute hepatic failure [Fatal]
  - Coagulopathy [Fatal]
  - Accidental overdose [None]
